FAERS Safety Report 4347487-0 (Version None)
Quarter: 2004Q2

REPORT INFORMATION
  Report Type: 
  Country: None (occurrence: None)
  Receive Date: 20040421
  Receipt Date: 20040323
  Transmission Date: 20050107
  Serious: Yes (Other)
  Sender: FDA-Public Use
  Company Number: 2004020384

PATIENT
  Age: 35 Year
  Sex: Female
  Weight: 72.5755 kg

DRUGS (3)
  1. RELPAX [Suspect]
     Indication: MIGRAINE
     Dosage: ORAL
     Route: 048
     Dates: start: 20040321, end: 20040321
  2. ESTRADIOL [Concomitant]
  3. ACIPHEX [Concomitant]

REACTIONS (8)
  - DYSPNOEA [None]
  - FEELING ABNORMAL [None]
  - MOVEMENT DISORDER [None]
  - NERVOUSNESS [None]
  - SOMNOLENCE [None]
  - THROAT TIGHTNESS [None]
  - VERTIGO [None]
  - VOMITING [None]
